FAERS Safety Report 4891817-8 (Version None)
Quarter: 2006Q1

REPORT INFORMATION
  Report Type: 
  Country: None (occurrence: None)
  Receive Date: 20060123
  Receipt Date: 20060112
  Transmission Date: 20060701
  Serious: Yes (Hospitalization)
  Sender: FDA-Public Use
  Company Number: FR200601001768

PATIENT
  Age: 85 Year
  Sex: Female

DRUGS (7)
  1. FORTEO [Suspect]
     Indication: OSTEOPOROSIS
     Dosage: 20 UG, DAILY (1.D), SUBCUTANEOUS
     Route: 058
     Dates: start: 20050415
  2. FORTEO [Concomitant]
  3. DISOPYRAMIDE [Concomitant]
  4. ASPIRIN [Concomitant]
  5. PRAVASTATIN [Concomitant]
  6. PIASCLEDINE (PERSEAE OLEUM, SOYA OIL) [Concomitant]
  7. OROCAL D(3) (CALCIUM CARBONATE, COLECALCIFEROL) [Concomitant]

REACTIONS (3)
  - CHEST PAIN [None]
  - DYSPNOEA [None]
  - HEART VALVE INSUFFICIENCY [None]
